FAERS Safety Report 22073659 (Version 1)
Quarter: 2023Q1

REPORT INFORMATION
  Report Type: Spontaneous
  Country: US (occurrence: None)
  Receive Date: 20230307
  Receipt Date: 20230307
  Transmission Date: 20230418
  Serious: Yes (Hospitalization)
  Sender: FDA-Public Use
  Company Number: None

PATIENT
  Age: 80 Year
  Sex: Female

DRUGS (15)
  1. AMBRISENTAN [Suspect]
     Active Substance: AMBRISENTAN
     Indication: Pulmonary hypertension
     Dosage: FREQUENCY : DAILY;?
     Route: 048
     Dates: start: 20180713
  2. SILDENAFIL [Concomitant]
     Active Substance: SILDENAFIL
  3. TREPROTINIL [Concomitant]
  4. METALAZONE [Concomitant]
  5. FUROSEMIDE [Concomitant]
     Active Substance: FUROSEMIDE
  6. ONDANSETRON [Concomitant]
     Active Substance: ONDANSETRON
  7. MYCOPHENOLIC ACID [Concomitant]
     Active Substance: MYCOPHENOLIC ACID
  8. FLONASE [Concomitant]
     Active Substance: FLUTICASONE PROPIONATE
  9. ASTELIN [Concomitant]
     Active Substance: AZELASTINE HYDROCHLORIDE
  10. DIGOXIN [Concomitant]
     Active Substance: DIGOXIN
  11. UTEROL INHL NEB SOLN [Concomitant]
  12. VITAMIN D3 [Concomitant]
     Active Substance: CHOLECALCIFEROL
  13. SPIRIVA REPIMAT [Concomitant]
  14. ALBUTEROL SULFATE [Concomitant]
     Active Substance: ALBUTEROL SULFATE
  15. WIXELA INHUB [Concomitant]
     Active Substance: FLUTICASONE PROPIONATE\SALMETEROL XINAFOATE

REACTIONS (3)
  - Acute kidney injury [None]
  - Polyuria [None]
  - Alkalosis [None]

NARRATIVE: CASE EVENT DATE: 20230201
